FAERS Safety Report 7396291-8 (Version None)
Quarter: 2011Q2

REPORT INFORMATION
  Report Type: 
  Country: None (occurrence: None)
  Receive Date: 20110406
  Receipt Date: 20110330
  Transmission Date: 20111010
  Serious: Yes (Other)
  Sender: FDA-Public Use
  Company Number: US-JNJFOC-20110401792

PATIENT
  Sex: Female

DRUGS (1)
  1. LEVAQUIN [Suspect]
     Indication: URINARY TRACT INFECTION
     Route: 048

REACTIONS (9)
  - PRESYNCOPE [None]
  - INSOMNIA [None]
  - DECREASED APPETITE [None]
  - TREMOR [None]
  - HEART RATE INCREASED [None]
  - NAUSEA [None]
  - VISUAL IMPAIRMENT [None]
  - DIZZINESS [None]
  - ABDOMINAL PAIN UPPER [None]
